FAERS Safety Report 5333233-0 (Version None)
Quarter: 2007Q2

REPORT INFORMATION
  Report Type: 
  Country: None (occurrence: None)
  Receive Date: 20070524
  Receipt Date: 20070514
  Transmission Date: 20071010
  Serious: Yes (Other)
  Sender: FDA-Public Use
  Company Number: PHBS2007JP08332

PATIENT
  Age: 73 Year
  Sex: Male

DRUGS (2)
  1. DIOVAN [Suspect]
     Dosage: 80 MG/DAY
     Route: 048
     Dates: start: 20060501
  2. PURSENNID [Concomitant]
     Route: 048

REACTIONS (1)
  - EOSINOPHIL PERCENTAGE INCREASED [None]
